FAERS Safety Report 7943078-0 (Version None)
Quarter: 2011Q4

REPORT INFORMATION
  Report Type: 
  Country: None (occurrence: None)
  Receive Date: 20111128
  Receipt Date: 20111121
  Transmission Date: 20120403
  Serious: Yes (Other)
  Sender: FDA-Public Use
  Company Number: CA-NAPPMUNDI-CAN-2011-0002392

PATIENT
  Age: 17 Year
  Sex: Female

DRUGS (4)
  1. ALCOHOL [Suspect]
     Indication: PRODUCT USED FOR UNKNOWN INDICATION
     Route: 048
  2. OXYCONTIN [Suspect]
     Indication: PRODUCT USED FOR UNKNOWN INDICATION
  3. ATIVAN [Suspect]
     Indication: PRODUCT USED FOR UNKNOWN INDICATION
  4. COCAINE [Suspect]
     Indication: PRODUCT USED FOR UNKNOWN INDICATION

REACTIONS (10)
  - FEELING ABNORMAL [None]
  - VICTIM OF SEXUAL ABUSE [None]
  - DRUG DEPENDENCE [None]
  - SUBSTANCE ABUSE [None]
  - MYOCARDIAL INFARCTION [None]
  - DRUG WITHDRAWAL SYNDROME [None]
  - WEIGHT INCREASED [None]
  - DYSPNOEA [None]
  - PANIC ATTACK [None]
  - HYPOAESTHESIA [None]
